FAERS Safety Report 6686485-9 (Version None)
Quarter: 2010Q2

REPORT INFORMATION
  Report Type: 
  Country: None (occurrence: None)
  Receive Date: 20100419
  Receipt Date: 20100409
  Transmission Date: 20101027
  Serious: Yes (Hospitalization)
  Sender: FDA-Public Use
  Company Number: JP-ROCHE-696158

PATIENT
  Sex: Female
  Weight: 57.4 kg

DRUGS (17)
  1. CAPECITABINE [Suspect]
     Indication: BREAST CANCER METASTATIC
     Dosage: 2 WEEKS ADMINISTRATION FOLLOWED BY 1 WEEK REST
     Route: 048
     Dates: start: 20100402
  2. TAXOTERE [Concomitant]
     Dosage: START DATE: 2010
     Route: 041
     Dates: start: 20100219, end: 20100312
  3. VOGLIBOSE [Concomitant]
     Route: 048
  4. ACTOS [Concomitant]
     Route: 048
  5. AMLODIPINE [Concomitant]
     Route: 048
  6. TRANDOLAPRIL [Concomitant]
     Dosage: TRANTOWA(TRANDOLAPRIL)
     Route: 048
  7. PRAVASTATIN SODIUM [Concomitant]
     Dosage: MAIBASTAN(PRAVASTATIN SODIUM)
     Route: 048
  8. ZOMETA [Concomitant]
     Route: 041
     Dates: start: 20100205
  9. MOBIC [Concomitant]
     Route: 048
     Dates: start: 20100219
  10. OXYCONTIN [Concomitant]
     Route: 048
     Dates: start: 20100303, end: 20100301
  11. OXYCONTIN [Concomitant]
     Dosage: STOP DATE: 2010
     Route: 048
     Dates: start: 20100312
  12. OXYCONTIN [Concomitant]
     Route: 048
     Dates: start: 20100402, end: 20100401
  13. MAGMITT [Concomitant]
     Route: 048
     Dates: start: 20100303
  14. OXINORM [Concomitant]
     Dosage: STOP DATE: 2010, DOSE FORM: POWDERED MEDICINE
     Route: 048
     Dates: start: 20100303
  15. OXINORM [Concomitant]
     Route: 048
     Dates: start: 20100402
  16. SULFADIAZINE SILVER [Concomitant]
     Dosage: GEBEN(SULFADIAZINE SILVER),  DOSAGE IS UNCERTAIN
     Route: 061
     Dates: start: 20100312
  17. FLAGYL [Concomitant]
     Dosage: DOSE FORM: INTERCALATING AGENT,  DOSAGE IS UNCERTAIN.
     Route: 067
     Dates: start: 20100402

REACTIONS (8)
  - ALOPECIA [None]
  - CANCER PAIN [None]
  - DECREASED APPETITE [None]
  - DIARRHOEA [None]
  - HOT FLUSH [None]
  - HYPOAESTHESIA [None]
  - MALAISE [None]
  - SKIN CHAPPED [None]
